FAERS Safety Report 13125575 (Version 2)
Quarter: 2017Q1

REPORT INFORMATION
  Report Type: Spontaneous
  Country: CH (occurrence: CH)
  Receive Date: 20170118
  Receipt Date: 20170203
  Transmission Date: 20170428
  Serious: Yes (Death, Hospitalization)
  Sender: FDA-Public Use
  Company Number: CH-SA-2017SA002481

PATIENT
  Age: 50 Year
  Sex: Male

DRUGS (7)
  1. ACCURETIC [Concomitant]
     Active Substance: HYDROCHLOROTHIAZIDE\QUINAPRIL HYDROCHLORIDE
     Dosage: 1-0-0-0
     Route: 048
  2. VITAMINA D3 WILD [Concomitant]
  3. LIORESAL [Concomitant]
     Active Substance: BACLOFEN
  4. MALTOFER [Concomitant]
     Active Substance: IRON POLYMALTOSE
     Dosage: 1-0-0-0
     Route: 048
  5. AUBAGIO [Suspect]
     Active Substance: TERIFLUNOMIDE
     Indication: MULTIPLE SCLEROSIS
     Route: 048
     Dates: start: 20140607, end: 20161227
  6. CALCIMAGON-D3 [Concomitant]
     Active Substance: CALCIUM\CHOLECALCIFEROL
  7. MYDOCALM [Concomitant]
     Active Substance: TOLPERISONE

REACTIONS (2)
  - Pneumonia [Fatal]
  - Pneumonitis [Fatal]

NARRATIVE: CASE EVENT DATE: 201612
